FAERS Safety Report 4599150-9 (Version None)
Quarter: 2005Q2

REPORT INFORMATION
  Report Type: 
  Country: None (occurrence: None)
  Receive Date: 20050207
  Receipt Date: 20041014
  Transmission Date: 20051028
  Serious: No
  Sender: FDA-Public Use
  Company Number: 2004USFACT00120

PATIENT
  Sex: Female

DRUGS (1)
  1. FACTIVE [Suspect]
     Indication: RESPIRATORY TRACT INFECTION BACTERIAL
     Dates: start: 20041001, end: 20041010

REACTIONS (1)
  - PHOTOSENSITIVITY REACTION [None]
